FAERS Safety Report 17323038 (Version 1)
Quarter: 2020Q1

REPORT INFORMATION
  Report Type: Spontaneous
  Country: US (occurrence: US)
  Receive Date: 20200124
  Receipt Date: 20200124
  Transmission Date: 20200409
  Serious: No
  Sender: FDA-Public Use
  Company Number: None

PATIENT
  Age: 72 Year
  Sex: Female

DRUGS (1)
  1. ESTRADIOL. [Suspect]
     Active Substance: ESTRADIOL
     Dosage: ?          OTHER FREQUENCY:WEEKLY;?
     Route: 062
     Dates: start: 20190314, end: 20190718

REACTIONS (2)
  - Device adhesion issue [None]
  - Dermatitis contact [None]

NARRATIVE: CASE EVENT DATE: 20190523
